FAERS Safety Report 5597381-2 (Version None)
Quarter: 2007Q4

REPORT INFORMATION
  Report Type: 
  Country: None (occurrence: None)
  Receive Date: 20071221
  Receipt Date: 20070914
  Transmission Date: 20080405
  Serious: No
  Sender: FDA-Public Use
  Company Number: SPV1-2007-04179

PATIENT
  Age: 7 Year
  Sex: Male
  Weight: 38.5 kg

DRUGS (3)
  1. VYVANSE [Suspect]
     Indication: ATTENTION DEFICIT/HYPERACTIVITY DISORDER
     Dosage: 30 MG, 1X/DAY:QD, ORAL
     Route: 048
     Dates: start: 20070910
  2. RISPERDAL [Concomitant]
  3. ZYRTEC [Concomitant]

REACTIONS (3)
  - ANGER [None]
  - CRYING [None]
  - DEPRESSED MOOD [None]
